FAERS Safety Report 7202823-2 (Version None)
Quarter: 2010Q4

REPORT INFORMATION
  Report Type: 
  Country: None (occurrence: None)
  Receive Date: 20101229
  Receipt Date: 20101217
  Transmission Date: 20110411
  Serious: Yes (Other)
  Sender: FDA-Public Use
  Company Number: US-PFIZER INC-2010174876

PATIENT
  Sex: Male
  Weight: 83.9 kg

DRUGS (2)
  1. LYRICA [Suspect]
     Indication: PAIN IN EXTREMITY
     Dosage: 25 MG, UNK
     Dates: start: 20101101, end: 20101210
  2. CIALIS [Concomitant]
     Dosage: UNK

REACTIONS (3)
  - DYSARTHRIA [None]
  - DYSSTASIA [None]
  - IMPAIRED DRIVING ABILITY [None]
